FAERS Safety Report 23442832 (Version 3)
Quarter: 2024Q1

REPORT INFORMATION
  Report Type: Report from Study
  Country: US (occurrence: US)
  Receive Date: 20240125
  Receipt Date: 20240215
  Transmission Date: 20240410
  Serious: Yes (Other)
  Sender: FDA-Public Use
  Company Number: US-SAREPTA THERAPEUTICS INC.-SRP2024-004204

PATIENT
  Sex: Male

DRUGS (1)
  1. CASIMERSEN [Suspect]
     Active Substance: CASIMERSEN
     Indication: Product used for unknown indication
     Dosage: 1750 MILLIGRAM, WEEKLY
     Route: 042

REACTIONS (5)
  - Rash [Not Recovered/Not Resolved]
  - Infusion related reaction [Unknown]
  - Pain in jaw [Unknown]
  - Swelling face [Recovered/Resolved]
  - Periorbital swelling [Recovered/Resolved]
